FAERS Safety Report 5347904-3 (Version None)
Quarter: 2007Q2

REPORT INFORMATION
  Report Type: 
  Country: None (occurrence: None)
  Receive Date: 20070510
  Receipt Date: 20070111
  Transmission Date: 20071010
  Serious: Yes (Other)
  Sender: FDA-Public Use
  Company Number: GXBR2006US01931

PATIENT
  Age: 47 Year
  Sex: Female
  Weight: 83.9 kg

DRUGS (2)
  1. NITROFURANTOIN [Suspect]
     Indication: CYSTITIS
     Dosage: 100 MG, ORAL
     Route: 048
     Dates: start: 20060811, end: 20060813
  2. ESTRADIOL [Suspect]
     Indication: OESTROGEN REPLACEMENT THERAPY
     Dosage: 0.05 MG, QD, TRANSDERMAL
     Route: 062
     Dates: start: 20060701, end: 20060801

REACTIONS (27)
  - ALANINE AMINOTRANSFERASE INCREASED [None]
  - ASPARTATE AMINOTRANSFERASE INCREASED [None]
  - BILIRUBIN CONJUGATED INCREASED [None]
  - BLOOD ALKALINE PHOSPHATASE INCREASED [None]
  - BLOOD BILIRUBIN INCREASED [None]
  - BLOOD BILIRUBIN UNCONJUGATED INCREASED [None]
  - CHILLS [None]
  - CONSTIPATION [None]
  - DISCOMFORT [None]
  - DRUG HYPERSENSITIVITY [None]
  - EOSINOPHIL COUNT INCREASED [None]
  - FAECES PALE [None]
  - FATIGUE [None]
  - FLUSHING [None]
  - HAEMORRHOIDS [None]
  - HEADACHE [None]
  - HEPATIC ENZYME INCREASED [None]
  - HEPATITIS ACUTE [None]
  - INFLUENZA LIKE ILLNESS [None]
  - JAUNDICE CHOLESTATIC [None]
  - NAUSEA [None]
  - OCULAR ICTERUS [None]
  - OEDEMA [None]
  - PAIN [None]
  - TREMOR [None]
  - URINE COLOUR ABNORMAL [None]
  - URTICARIA [None]
